FAERS Safety Report 24315891 (Version 2)
Quarter: 2024Q4

REPORT INFORMATION
  Report Type: Spontaneous
  Country: RO (occurrence: RO)
  Receive Date: 20240913
  Receipt Date: 20241015
  Transmission Date: 20250115
  Serious: Yes (Other)
  Sender: AUROBINDO
  Company Number: RO-SUN PHARMACEUTICAL INDUSTRIES LTD-2024RR-465934

PATIENT
  Age: 6 Year
  Sex: Male

DRUGS (1)
  1. LEVETIRACETAM [Suspect]
     Active Substance: LEVETIRACETAM
     Indication: Epilepsy
     Dosage: UNK
     Route: 065

REACTIONS (3)
  - Encopresis [Recovered/Resolved]
  - Enuresis [Recovered/Resolved]
  - Aggression [Recovered/Resolved]
